FAERS Safety Report 13359324 (Version 1)
Quarter: 2017Q1

REPORT INFORMATION
  Report Type: Spontaneous
  Country: US (occurrence: US)
  Receive Date: 20170321
  Receipt Date: 20170321
  Transmission Date: 20170429
  Serious: No
  Sender: FDA-Public Use
  Company Number: None

PATIENT
  Age: 70 Year
  Sex: Female
  Weight: 84 kg

DRUGS (3)
  1. 5-FLUOROURACIL [Suspect]
     Active Substance: FLUOROURACIL
     Dates: end: 20170126
  2. ELOXATIN [Suspect]
     Active Substance: OXALIPLATIN
     Dates: end: 20170126
  3. CAMPTOSAR [Suspect]
     Active Substance: IRINOTECAN HYDROCHLORIDE
     Dates: end: 20170126

REACTIONS (4)
  - Urinary retention [None]
  - Blood alkaline phosphatase increased [None]
  - Aspartate aminotransferase increased [None]
  - Hepatic steatosis [None]

NARRATIVE: CASE EVENT DATE: 20170314
